FAERS Safety Report 12230416 (Version 1)
Quarter: 2016Q1

REPORT INFORMATION
  Report Type: Spontaneous
  Country: US (occurrence: None)
  Receive Date: 20160331
  Receipt Date: 20160331
  Transmission Date: 20160526
  Serious: Yes (Life-Threatening, Hospitalization)
  Sender: FDA-Public Use
  Company Number: None

PATIENT
  Age: 51 Year
  Sex: Female
  Weight: 74 kg

DRUGS (4)
  1. MOBIC [Concomitant]
     Active Substance: MELOXICAM
  2. IBUPROFEN. [Concomitant]
     Active Substance: IBUPROFEN
  3. NUVARING [Suspect]
     Active Substance: ETHINYL ESTRADIOL\ETONOGESTREL
     Indication: CONTRACEPTION
     Dosage: 0.120 MG EVERY 21 DAYS X 3 VAGINAL
     Route: 067
  4. CLARITIN [Concomitant]
     Active Substance: LORATADINE

REACTIONS (6)
  - Electrocardiogram T wave inversion [None]
  - Deep vein thrombosis [None]
  - Pulmonary embolism [None]
  - Dyspnoea exertional [None]
  - Tachycardia [None]
  - Ventricular hypokinesia [None]

NARRATIVE: CASE EVENT DATE: 20160325
